FAERS Safety Report 22286915 (Version 1)
Quarter: 2023Q2

REPORT INFORMATION
  Report Type: Spontaneous
  Country: IT (occurrence: IT)
  Receive Date: 20230505
  Receipt Date: 20230505
  Transmission Date: 20230721
  Serious: Yes (Hospitalization)
  Sender: FDA-Public Use
  Company Number: None

PATIENT
  Age: 66 Year
  Sex: Male

DRUGS (6)
  1. AZITHROMYCIN [Suspect]
     Active Substance: AZITHROMYCIN
     Indication: Bronchitis
     Dosage: 500 MG, QD (DOSAGE: 500 UNITS OF MEASURE: MILLIGRAMS FREQUENCY OF ADMINISTRATION: DAILY ROUTE OF ADM
     Route: 048
     Dates: start: 20220713, end: 20220718
  2. AMOXICILLIN\CLAVULANIC ACID [Suspect]
     Active Substance: AMOXICILLIN\CLAVULANIC ACID
     Indication: Product used for unknown indication
     Dosage: UNK (DOSAGE: 2 UNIT OF MEASUREMENT: GRAMS FREQUENCY OF ADMINISTRATION: DAILY ROUTE OF ADMINISTRATION
     Route: 048
     Dates: start: 20220708, end: 20220718
  3. ASPIRIN [Concomitant]
     Active Substance: ASPIRIN
     Indication: Product used for unknown indication
     Dosage: UNK
     Route: 065
  4. SIMVASTATIN [Concomitant]
     Active Substance: SIMVASTATIN
     Indication: Product used for unknown indication
     Dosage: UNK
     Route: 065
  5. RAMIPRIL [Concomitant]
     Active Substance: RAMIPRIL
     Indication: Hypertension
     Dosage: UNK
     Route: 065
  6. PREDNISONE [Concomitant]
     Active Substance: PREDNISONE
     Indication: Product used for unknown indication
     Dosage: 25 MG (DOSAGE: 25 UNIT OF MEASUREMENT: MILLIGRAMS ROUTE OF ADMINISTRATION: ORAL)
     Route: 048
     Dates: start: 20220713

REACTIONS (6)
  - Genital erosion [Recovering/Resolving]
  - Mouth injury [Recovering/Resolving]
  - Rash morbilliform [Recovering/Resolving]
  - Pruritus [Recovering/Resolving]
  - Drug hypersensitivity [Recovering/Resolving]
  - Angioedema [Recovering/Resolving]

NARRATIVE: CASE EVENT DATE: 20220716
